FAERS Safety Report 11807928 (Version 1)
Quarter: 2015Q4

REPORT INFORMATION
  Report Type: Spontaneous
  Country: US (occurrence: US)
  Receive Date: 20151207
  Receipt Date: 20151207
  Transmission Date: 20160305
  Serious: No
  Sender: FDA-Public Use
  Company Number: US-ENDO PHARMACEUTICALS INC.-201501053

PATIENT
  Age: 75 Year
  Sex: Female
  Weight: 81.72 kg

DRUGS (8)
  1. VIAGRA [Concomitant]
     Active Substance: SILDENAFIL CITRATE
  2. ATORVASTATIN [Concomitant]
     Active Substance: ATORVASTATIN
  3. TRICOR [Concomitant]
     Active Substance: FENOFIBRATE
  4. METFORMIN [Concomitant]
     Active Substance: METFORMIN HYDROCHLORIDE
  5. RAMIPRIL. [Concomitant]
     Active Substance: RAMIPRIL
  6. TAMSULOSIN [Concomitant]
     Active Substance: TAMSULOSIN
  7. ACTOPLUS MET [Concomitant]
     Active Substance: METFORMIN HYDROCHLORIDE\PIOGLITAZONE HYDROCHLORIDE
  8. TESTIM [Suspect]
     Active Substance: TESTOSTERONE
     Indication: BLOOD TESTOSTERONE DECREASED
     Dosage: 5-6 YEARS AGO
     Route: 062

REACTIONS (3)
  - Accidental exposure to product [Unknown]
  - Exposure via direct contact [Unknown]
  - No adverse event [None]
